FAERS Safety Report 10843113 (Version 1)
Quarter: 2015Q1

REPORT INFORMATION
  Report Type: Report from Study
  Country: US (occurrence: US)
  Receive Date: 20150220
  Receipt Date: 20150220
  Transmission Date: 20150721
  Serious: No
  Sender: FDA-Public Use
  Company Number: US-ABBVIE-14P-163-1275204-00

PATIENT
  Age: 54 Year
  Sex: Female

DRUGS (7)
  1. HUMIRA [Suspect]
     Active Substance: ADALIMUMAB
     Indication: COLITIS ULCERATIVE
     Dates: start: 20140807, end: 20140807
  2. HORMONES [Concomitant]
     Active Substance: UNSPECIFIED INGREDIENT
     Indication: HYSTERECTOMY
  3. PREDNISONE. [Concomitant]
     Active Substance: PREDNISONE
     Indication: PRODUCT USED FOR UNKNOWN INDICATION
     Dosage: TAPERED DOSE
  4. HUMIRA [Suspect]
     Active Substance: ADALIMUMAB
  5. ANTIHYPERTENSIVES [Concomitant]
     Active Substance: UNSPECIFIED INGREDIENT
     Indication: HYPERTENSION
  6. LEXAPRO [Concomitant]
     Active Substance: ESCITALOPRAM OXALATE
     Indication: DEPRESSION
     Route: 048
  7. BALSALAZIDE [Concomitant]
     Active Substance: BALSALAZIDE
     Indication: COLITIS ULCERATIVE
     Route: 048

REACTIONS (2)
  - Skin discolouration [Not Recovered/Not Resolved]
  - Contusion [Not Recovered/Not Resolved]

NARRATIVE: CASE EVENT DATE: 201408
